FAERS Safety Report 10204284 (Version 2)
Quarter: 2014Q2

REPORT INFORMATION
  Report Type: Spontaneous
  Country: BR (occurrence: BR)
  Receive Date: 20140529
  Receipt Date: 20140618
  Transmission Date: 20141212
  Serious: Yes (Hospitalization)
  Sender: FDA-Public Use
  Company Number: BR-ASTRAZENECA-2014SE35404

PATIENT
  Age: 70 Year
  Sex: Female
  Weight: 75 kg

DRUGS (4)
  1. CRESTOR [Suspect]
     Indication: HYPERCHOLESTEROLAEMIA
     Route: 048
  2. CRESTOR [Suspect]
     Indication: HYPERTENSION
     Route: 048
  3. LIPIDIL [Concomitant]
     Indication: HYPERCHOLESTEROLAEMIA
     Dosage: DAILY
     Route: 048
  4. JANUMET [Concomitant]
     Indication: DIABETES MELLITUS
     Route: 048
     Dates: start: 2014

REACTIONS (1)
  - Myocardial infarction [Recovered/Resolved]
